FAERS Safety Report 19839976 (Version 3)
Quarter: 2021Q4

REPORT INFORMATION
  Report Type: Spontaneous
  Country: FR (occurrence: FR)
  Receive Date: 20210915
  Receipt Date: 20211008
  Transmission Date: 20220303
  Serious: Yes (Hospitalization, Other)
  Sender: FDA-Public Use
  Company Number: None

PATIENT
  Age: 61 Year
  Sex: Male

DRUGS (8)
  1. ATORVASTATIN [Suspect]
     Active Substance: ATORVASTATIN
     Indication: Acute coronary syndrome
     Dosage: 80 MILLIGRAM, QD
     Route: 048
     Dates: start: 20210309, end: 20210407
  2. VISIPAQUE [Suspect]
     Active Substance: IODIXANOL
     Indication: Angiocardiogram
     Dosage: UNK
     Route: 051
     Dates: start: 20210309, end: 20210309
  3. VISIPAQUE [Suspect]
     Active Substance: IODIXANOL
     Dosage: UNK UNK, QD
     Route: 051
     Dates: start: 20210317, end: 20210317
  4. VISIPAQUE [Suspect]
     Active Substance: IODIXANOL
     Dosage: UNK, QD
     Route: 042
     Dates: start: 20210309, end: 20210309
  5. TICAGRELOR [Concomitant]
     Active Substance: TICAGRELOR
     Indication: Acute coronary syndrome
     Dosage: 180 MILLIGRAM, QD
     Route: 048
     Dates: start: 20210309
  6. KARDEGIC [Concomitant]
     Active Substance: ASPIRIN DL-LYSINE
     Indication: Acute coronary syndrome
     Dosage: 1 DOSAGE FORM, QD
     Route: 048
     Dates: start: 20210309
  7. LANSOPRAZOLE [Concomitant]
     Active Substance: LANSOPRAZOLE
     Indication: Product used for unknown indication
     Dosage: 15 MILLIGRAM, QD
     Route: 048
     Dates: start: 20210309
  8. CARVEDILOL [Concomitant]
     Active Substance: CARVEDILOL
     Indication: Acute coronary syndrome
     Dosage: 0.5 DOSAGE FORM, 0.5 COMPRIM? MATIN ET SOIR
     Route: 048
     Dates: start: 20210309

REACTIONS (3)
  - Rash [Recovered/Resolved]
  - Hepatic cytolysis [Recovering/Resolving]
  - Eosinophilia [Recovered/Resolved]

NARRATIVE: CASE EVENT DATE: 20210318
